FAERS Safety Report 11494573 (Version 1)
Quarter: 2015Q3

REPORT INFORMATION
  Report Type: Spontaneous
  Country: US (occurrence: None)
  Receive Date: 20150910
  Receipt Date: 20150910
  Transmission Date: 20151125
  Serious: Yes (Hospitalization, Other)
  Sender: FDA-Public Use
  Company Number: None

PATIENT
  Age: 57 Year
  Sex: Female
  Weight: 76.2 kg

DRUGS (12)
  1. IPRATROPIUM BROMIDE AND ALBUTEROL SULFATE [Suspect]
     Active Substance: ALBUTEROL SULFATE\IPRATROPIUM BROMIDE
     Indication: BRONCHIECTASIS
     Route: 055
     Dates: start: 20150904, end: 20150908
  2. BABY ASPRIN [Concomitant]
     Active Substance: ASPIRIN
  3. TOZAL PRESCRIPTION VITAMIN [Concomitant]
  4. IPRATROPIUM BROMIDE AND ALBUTEROL SULFATE [Suspect]
     Active Substance: ALBUTEROL SULFATE\IPRATROPIUM BROMIDE
     Indication: ASTHMA
     Route: 055
     Dates: start: 20150904, end: 20150908
  5. STIOLTO RESPIMAT [Suspect]
     Active Substance: OLODATEROL HYDROCHLORIDE\TIOTROPIUM BROMIDE MONOHYDRATE
     Indication: ASTHMA
     Dates: start: 20150803, end: 20150813
  6. PREDNISONE. [Concomitant]
     Active Substance: PREDNISONE
  7. STIOLTO RESPIMAT [Suspect]
     Active Substance: OLODATEROL HYDROCHLORIDE\TIOTROPIUM BROMIDE MONOHYDRATE
     Indication: CHRONIC OBSTRUCTIVE PULMONARY DISEASE
     Dates: start: 20150803, end: 20150813
  8. VALSPARTAN [Concomitant]
  9. ZOVIRAX [Concomitant]
     Active Substance: ACYCLOVIR
  10. DAPSONE. [Concomitant]
     Active Substance: DAPSONE
  11. NASONEX [Concomitant]
     Active Substance: MOMETASONE FUROATE
  12. ADVAIR HFA [Concomitant]
     Active Substance: FLUTICASONE PROPIONATE\SALMETEROL XINAFOATE

REACTIONS (4)
  - Dyspnoea [None]
  - Urticaria [None]
  - Musculoskeletal pain [None]
  - Contusion [None]

NARRATIVE: CASE EVENT DATE: 20150904
